FAERS Safety Report 13607570 (Version 1)
Quarter: 2017Q2

REPORT INFORMATION
  Report Type: Spontaneous
  Country: US (occurrence: US)
  Receive Date: 20170602
  Receipt Date: 20170602
  Transmission Date: 20170830
  Serious: Yes (Hospitalization)
  Sender: FDA-Public Use
  Company Number: US-WEST-WARD PHARMACEUTICALS CORP.-US-H14001-17-01706

PATIENT
  Age: 76 Year
  Sex: Female

DRUGS (6)
  1. BEVACIZUMAB [Suspect]
     Active Substance: BEVACIZUMAB
     Indication: COLON CANCER METASTATIC
     Route: 065
  2. FOLINIC ACID [Suspect]
     Active Substance: LEUCOVORIN
     Indication: COLON CANCER METASTATIC
     Route: 065
  3. BEVACIZUMAB [Suspect]
     Active Substance: BEVACIZUMAB
     Indication: ACUTE MYELOID LEUKAEMIA (IN REMISSION)
  4. FLUOROURACIL. [Suspect]
     Active Substance: FLUOROURACIL
     Indication: ACUTE MYELOID LEUKAEMIA (IN REMISSION)
  5. FOLINIC ACID [Suspect]
     Active Substance: LEUCOVORIN
     Indication: ACUTE MYELOID LEUKAEMIA (IN REMISSION)
  6. FLUOROURACIL. [Suspect]
     Active Substance: FLUOROURACIL
     Indication: COLON CANCER METASTATIC
     Route: 065

REACTIONS (2)
  - Tongue eruption [Recovering/Resolving]
  - Tongue discolouration [Recovering/Resolving]
